FAERS Safety Report 15979625 (Version 1)
Quarter: 2019Q1

REPORT INFORMATION
  Report Type: Spontaneous
  Country: US (occurrence: US)
  Receive Date: 20190124
  Receipt Date: 20190124
  Transmission Date: 20190418
  Serious: Yes (Death)
  Sender: FDA-Public Use
  Company Number: None

PATIENT
  Age: 76 Year

DRUGS (1)
  1. TACROLIMUS CAP ACCO [Suspect]
     Active Substance: TACROLIMUS
     Indication: LUNG TRANSPLANT
     Route: 048
     Dates: start: 20140911

REACTIONS (1)
  - Death [None]
